FAERS Safety Report 8264899-3 (Version None)
Quarter: 2012Q2

REPORT INFORMATION
  Report Type: 
  Country: None (occurrence: None)
  Receive Date: 20120404
  Receipt Date: 20120328
  Transmission Date: 20120825
  Serious: Yes (Hospitalization)
  Sender: FDA-Public Use
  Company Number: 2011SP051273

PATIENT
  Age: 27 Year
  Sex: Female
  Weight: 95.2554 kg

DRUGS (1)
  1. NUVARING [Suspect]
     Indication: CONTRACEPTION
     Dates: start: 20040101, end: 20091117

REACTIONS (11)
  - PULMONARY EMBOLISM [None]
  - WEIGHT DECREASED [None]
  - HEPATIC STEATOSIS [None]
  - DEEP VEIN THROMBOSIS [None]
  - DEPRESSION [None]
  - HEPATITIS [None]
  - MATERNAL EXPOSURE DURING PREGNANCY [None]
  - THROMBOSIS [None]
  - INJURY [None]
  - CHOLECYSTECTOMY [None]
  - APPENDICITIS [None]
